FAERS Safety Report 6172830-X (Version None)
Quarter: 2009Q2

REPORT INFORMATION
  Report Type: 
  Country: None (occurrence: None)
  Receive Date: 20090430
  Receipt Date: 20090423
  Transmission Date: 20091009
  Serious: Yes (Disabling)
  Sender: FDA-Public Use
  Company Number: JP-ASTRAZENECA-2009AP02598

PATIENT
  Age: 44 Year
  Sex: Male

DRUGS (3)
  1. OMEPRAL [Suspect]
     Indication: REFLUX OESOPHAGITIS
     Route: 048
     Dates: start: 20081110, end: 20090413
  2. GASLON N [Concomitant]
     Indication: GASTRITIS
     Route: 048
     Dates: start: 20090210, end: 20090413
  3. ALOSITOL [Concomitant]
     Indication: HYPERURICAEMIA
     Route: 048
     Dates: start: 20080701

REACTIONS (1)
  - VISION BLURRED [None]
